FAERS Safety Report 9925733 (Version 2)
Quarter: 2014Q1

REPORT INFORMATION
  Report Type: Spontaneous
  Country: US (occurrence: None)
  Receive Date: 20140220
  Receipt Date: 20140318
  Transmission Date: 20141002
  Serious: Yes (Death, Other)
  Sender: FDA-Public Use
  Company Number: 2014US003024

PATIENT
  Sex: 0

DRUGS (1)
  1. ICLUSIG [Suspect]
     Indication: PRODUCT USED FOR UNKNOWN INDICATION
     Route: 048
     Dates: start: 20131215

REACTIONS (2)
  - Sudden death [None]
  - Malaise [None]
